FAERS Safety Report 7792987-4 (Version None)
Quarter: 2011Q4

REPORT INFORMATION
  Report Type: 
  Country: None (occurrence: None)
  Receive Date: 20111003
  Receipt Date: 20110929
  Transmission Date: 20120403
  Serious: Yes (Life-Threatening)
  Sender: FDA-Public Use
  Company Number: PHFR2011GB05623

PATIENT
  Age: 60 Year
  Sex: Female
  Weight: 79 kg

DRUGS (5)
  1. LANSOPRAZOLE [Concomitant]
     Dosage: 30 MG, UNK
     Route: 048
     Dates: start: 20070101
  2. CALCIUM CARBONATE [Concomitant]
     Dosage: 2 DF, QD
     Route: 048
     Dates: start: 20110501
  3. ZOLEDRONIC ACID [Suspect]
     Indication: OSTEOPOROSIS
     Dosage: UNK
     Route: 042
     Dates: end: 20110714
  4. PROCHLORPERAZINE [Concomitant]
     Indication: NAUSEA
     Dosage: 5 MG, TID
     Route: 048
     Dates: start: 20110714
  5. SCOPOLAMINE [Concomitant]
     Indication: ABDOMINAL PAIN
     Dosage: 20 MG, QID
     Route: 048
     Dates: start: 20070101

REACTIONS (5)
  - NAUSEA [None]
  - CHEST PAIN [None]
  - ABDOMINAL PAIN UPPER [None]
  - BLOOD AMYLASE INCREASED [None]
  - PANCREATITIS [None]
